FAERS Safety Report 21308360 (Version 4)
Quarter: 2022Q4

REPORT INFORMATION
  Report Type: Report from Study
  Country: US (occurrence: US)
  Receive Date: 20220908
  Receipt Date: 20221109
  Transmission Date: 20230112
  Serious: No
  Sender: FDA-Public Use
  Company Number: US-NOVARTISTESTPH-NVSC2022US202683

PATIENT
  Age: 54 Year
  Sex: Female

DRUGS (1)
  1. COSENTYX [Suspect]
     Active Substance: SECUKINUMAB
     Indication: Psoriasis
     Dosage: 300 MG, QW
     Route: 058
     Dates: start: 20220901

REACTIONS (6)
  - Dyspepsia [Recovering/Resolving]
  - Dysphagia [Recovering/Resolving]
  - Pruritus [Recovering/Resolving]
  - Varicella [Unknown]
  - Skin fissures [Unknown]
  - Rash [Unknown]

NARRATIVE: CASE EVENT DATE: 20220902
